FAERS Safety Report 9500684 (Version 3)
Quarter: 2013Q3

REPORT INFORMATION
  Report Type: Report from Study
  Country: FR (occurrence: FR)
  Receive Date: 20130905
  Receipt Date: 20130916
  Transmission Date: 20140515
  Serious: Yes (Death)
  Sender: FDA-Public Use
  Company Number: FR-PFIZER INC-2013251978

PATIENT
  Age: 61 Year
  Sex: Male
  Weight: 76 kg

DRUGS (2)
  1. SUNITINIB MALATE [Suspect]
     Indication: METASTATIC RENAL CELL CARCINOMA
     Dosage: 50 MG, CYCLIC  (4 WEEKS ON, 2 WEEKS OFF)
     Dates: start: 20100917, end: 201201
  2. SUNITINIB MALATE [Suspect]
     Dosage: 50 MG, CYCLIC  (4 WEEKS ON, 2 WEEKS OFF)
     Dates: start: 20120918, end: 201301

REACTIONS (2)
  - Disease progression [Fatal]
  - Metastatic renal cell carcinoma [Fatal]
